FAERS Safety Report 5913564-3 (Version None)
Quarter: 2008Q4

REPORT INFORMATION
  Report Type: 
  Country: None (occurrence: None)
  Receive Date: 20081006
  Receipt Date: 20080929
  Transmission Date: 20090506
  Serious: No
  Sender: FDA-Public Use
  Company Number: 08H-163-0314980-00

PATIENT
  Age: 73 Year
  Sex: Male
  Weight: 95.2554 kg

DRUGS (2)
  1. VITAMIN K1 [Suspect]
     Indication: INTERNATIONAL NORMALISED RATIO INCREASED
     Dosage: 5 MG, ONCE, INTRAVENOUS BOLUS
     Route: 040
     Dates: start: 20080921, end: 20080921
  2. MORPHINE SULFATE [Suspect]
     Indication: ABDOMINAL PAIN
     Dosage: 0.5 MG, ONCE, INTRAVENOUS BOLUS
     Route: 040
     Dates: start: 20080921, end: 20080921

REACTIONS (13)
  - ABDOMINAL PAIN [None]
  - AGITATION [None]
  - BACK PAIN [None]
  - BLOOD PRESSURE INCREASED [None]
  - CHEST PAIN [None]
  - CHILLS [None]
  - FLUSHING [None]
  - HYPOAESTHESIA [None]
  - NAUSEA [None]
  - PALLOR [None]
  - PARAESTHESIA [None]
  - RESTLESSNESS [None]
  - TREMOR [None]
